FAERS Safety Report 22592630 (Version 1)
Quarter: 2023Q2

REPORT INFORMATION
  Report Type: Report from Study
  Country: GB (occurrence: GB)
  Receive Date: 20230613
  Receipt Date: 20230613
  Transmission Date: 20230722
  Serious: Yes (Other)
  Sender: FDA-Public Use
  Company Number: GB-TAKEDA-2023TUS016256

PATIENT
  Age: 55 Year
  Sex: Male

DRUGS (4)
  1. MIRTAZAPINE [Suspect]
     Active Substance: MIRTAZAPINE
     Indication: Product used for unknown indication
     Dosage: 15 MILLIGRAM;
     Route: 050
  2. AGALSIDASE ALFA [Suspect]
     Active Substance: AGALSIDASE ALFA
     Indication: Fabry^s disease
     Dosage: 14 MILLIGRAM, 1/WEEK
     Route: 050
  3. AGALSIDASE ALFA [Suspect]
     Active Substance: AGALSIDASE ALFA
     Dosage: 14 MILLIGRAM, Q2WEEKS
     Route: 050
     Dates: start: 20020516
  4. AGALSIDASE ALFA [Suspect]
     Active Substance: AGALSIDASE ALFA
     Dosage: 17.5 MILLIGRAM, Q2WEEKS
     Route: 050
     Dates: start: 20020516

REACTIONS (7)
  - Haematochezia [Unknown]
  - Lethargy [Recovering/Resolving]
  - Somnolence [Recovered/Resolved]
  - Asthenia [Recovered/Resolved]
  - Fatigue [Recovering/Resolving]
  - Abdominal pain [Not Recovered/Not Resolved]
  - Arthralgia [Not Recovered/Not Resolved]
